FAERS Safety Report 5197621-8 (Version None)
Quarter: 2006Q4

REPORT INFORMATION
  Report Type: 
  Country: None (occurrence: None)
  Receive Date: 20061228
  Receipt Date: 20061215
  Transmission Date: 20070319
  Serious: Yes (Hospitalization)
  Sender: FDA-Public Use
  Company Number: TCI2006A05942

PATIENT
  Age: 8 Decade
  Sex: Male

DRUGS (1)
  1. ACTOS [Suspect]
     Route: 048
     Dates: end: 20061209

REACTIONS (3)
  - DIALYSIS [None]
  - OEDEMA [None]
  - RENAL FAILURE [None]
